FAERS Safety Report 8032562-X (Version None)
Quarter: 2012Q1

REPORT INFORMATION
  Report Type: 
  Country: None (occurrence: None)
  Receive Date: 20120105
  Receipt Date: 20111226
  Transmission Date: 20120608
  Serious: Yes (Life-Threatening, Hospitalization)
  Sender: FDA-Public Use
  Company Number: MSTR-NO-1112S-0271

PATIENT
  Age: 67 Year
  Sex: Male

DRUGS (4)
  1. METASTRON [Suspect]
     Indication: METASTASIS
     Dosage: 185 MBQ, SINGLE DOSE, INTRAVENOUS
     Route: 042
     Dates: start: 20111115, end: 20111115
  2. ATROVASTATIN (ATROVASTATIN) [Concomitant]
  3. CLODRONATE (LYTOS) (CLODRONATE DISODIUM) [Concomitant]
  4. BICALUTAMIDE (CASODEX) (BICALUTAMIDE) [Concomitant]

REACTIONS (6)
  - PLATELET COUNT DECREASED [None]
  - TUMOUR HAEMORRHAGE [None]
  - RECTAL HAEMORRHAGE [None]
  - GENERAL PHYSICAL HEALTH DETERIORATION [None]
  - HAEMOGLOBIN DECREASED [None]
  - COLON CANCER [None]
